FAERS Safety Report 24043304 (Version 5)
Quarter: 2024Q3

REPORT INFORMATION
  Report Type: Spontaneous
  Country: GR (occurrence: GR)
  Receive Date: 20240702
  Receipt Date: 20240918
  Transmission Date: 20241017
  Serious: Yes (Hospitalization, Other)
  Sender: CELLTRION
  Company Number: GR-CELLTRION INC.-2024GR015703

PATIENT

DRUGS (6)
  1. INFLIXIMAB [Suspect]
     Active Substance: INFLIXIMAB
     Indication: Psoriatic arthropathy
     Dosage: 120 MG, EVERY 2 WEEKS
     Route: 058
     Dates: start: 202403
  2. INFLIXIMAB [Suspect]
     Active Substance: INFLIXIMAB
     Dosage: 120 MG, EVERY 2 WEEKS
     Route: 058
     Dates: start: 20240627
  3. INFLIXIMAB [Suspect]
     Active Substance: INFLIXIMAB
     Dosage: 120 MG, EVERY 2 WEEKS
     Route: 058
     Dates: start: 20240711
  4. INFLIXIMAB [Suspect]
     Active Substance: INFLIXIMAB
     Indication: Psoriatic arthropathy
     Dosage: UNKNOWN
     Route: 041
     Dates: start: 20240222
  5. INFLIXIMAB [Suspect]
     Active Substance: INFLIXIMAB
     Dosage: UNKNOWN
     Route: 041
     Dates: start: 20240307
  6. MEDROL [Concomitant]
     Active Substance: METHYLPREDNISOLONE
     Dosage: 4 MG, EVERY 12 HOURS

REACTIONS (6)
  - Soft tissue necrosis [Unknown]
  - Autoimmune disorder [Unknown]
  - Injection site vesicles [Unknown]
  - Injection site necrosis [Unknown]
  - Injection site haematoma [Unknown]
  - Injection site pain [Unknown]

NARRATIVE: CASE EVENT DATE: 20240623
